FAERS Safety Report 18792912 (Version 2)
Quarter: 2021Q1

REPORT INFORMATION
  Report Type: Spontaneous
  Country: US (occurrence: US)
  Receive Date: 20210127
  Receipt Date: 20210226
  Transmission Date: 20210419
  Serious: Yes (Other)
  Sender: FDA-Public Use
  Company Number: US-PFIZER INC-2019250657

PATIENT
  Age: 36 Year
  Sex: Male

DRUGS (1)
  1. XYNTHA [Suspect]
     Active Substance: ANTIHEMOPHILIC FACTOR, HUMAN RECOMBINANT RESIDUES 743-1636 DELETED
     Indication: HAEMARTHROSIS
     Dosage: 4,000 =/? 10%, AS NEEDED (INJECT XYNTHA 4,000 =/? 10% UNITS PRN (AS NEEDED) EVERY 12 HOURS)

REACTIONS (1)
  - Haemorrhage [Unknown]
